FAERS Safety Report 6382932-0 (Version None)
Quarter: 2009Q3

REPORT INFORMATION
  Report Type: 
  Country: None (occurrence: None)
  Receive Date: 20090930
  Receipt Date: 20090917
  Transmission Date: 20100115
  Serious: Yes (Hospitalization)
  Sender: FDA-Public Use
  Company Number: FR-PFIZER INC-2009270307

PATIENT
  Age: 80 Year

DRUGS (7)
  1. MEDROL [Suspect]
     Indication: TEMPORAL ARTERITIS
     Dosage: 16 MG, ALTERNATE DAY
     Route: 048
     Dates: start: 20080101
  2. PREVISCAN [Interacting]
     Indication: ATRIAL FIBRILLATION
     Dosage: 10 MG, 1X/DAY
     Route: 048
  3. EURELIX [Concomitant]
  4. TENORMIN [Concomitant]
  5. LERCANIDIPINE [Concomitant]
  6. TRIVASTAL [Concomitant]
  7. CETORNAN [Concomitant]

REACTIONS (2)
  - DRUG INTERACTION [None]
  - INTERNATIONAL NORMALISED RATIO INCREASED [None]
